FAERS Safety Report 5256631-2 (Version None)
Quarter: 2007Q1

REPORT INFORMATION
  Report Type: 
  Country: None (occurrence: None)
  Receive Date: 20070306
  Receipt Date: 20070226
  Transmission Date: 20070707
  Serious: Yes (Other)
  Sender: FDA-Public Use
  Company Number: US-PFIZER INC-2006132826

PATIENT
  Age: 58 Year
  Sex: Male
  Weight: 125.6 kg

DRUGS (2)
  1. NEURONTIN [Suspect]
     Indication: NEURALGIA
     Route: 048
  2. LYRICA [Suspect]

REACTIONS (1)
  - ATRIAL FIBRILLATION [None]
